FAERS Safety Report 5127038-3 (Version None)
Quarter: 2006Q4

REPORT INFORMATION
  Report Type: 
  Country: None (occurrence: None)
  Receive Date: 20061013
  Receipt Date: 20061006
  Transmission Date: 20070319
  Serious: Yes (Life-Threatening, Other)
  Sender: FDA-Public Use
  Company Number: 2006JP003597

PATIENT
  Sex: Female

DRUGS (11)
  1. CEFAMEZIN [Suspect]
     Dosage: 2G SINGLE DOSE
  2. PREDNISOLONE [Concomitant]
  3. THEOPHYLLINE [Concomitant]
  4. OXYTOCIN [Concomitant]
  5. OXYGEN [Concomitant]
  6. LACTATED RINGER'S [Concomitant]
  7. FENTANYL [Concomitant]
  8. SEVOFLURANE [Concomitant]
  9. EPINEPHRINE [Concomitant]
  10. DEXAMETHASONE TAB [Concomitant]
  11. SOLU-CORTEF [Concomitant]

REACTIONS (6)
  - APNOEA [None]
  - BRADYCARDIA FOETAL [None]
  - CYANOSIS NEONATAL [None]
  - DRUG EXPOSURE DURING PREGNANCY [None]
  - FOETAL DISTRESS SYNDROME [None]
  - HYPOTONIA [None]
